FAERS Safety Report 7808415-6 (Version None)
Quarter: 2011Q4

REPORT INFORMATION
  Report Type: 
  Country: None (occurrence: None)
  Receive Date: 20111012
  Receipt Date: 20110927
  Transmission Date: 20120403
  Serious: Yes (Hospitalization)
  Sender: FDA-Public Use
  Company Number: US-JNJFOC-20111000930

PATIENT
  Sex: Female
  Weight: 57.42 kg

DRUGS (8)
  1. SYNTHROID [Concomitant]
     Indication: HYPERTHYROIDISM
     Route: 065
  2. NICOTINE [Suspect]
     Indication: PRODUCT USED FOR UNKNOWN INDICATION
     Route: 065
  3. NICOTROL [Suspect]
     Indication: SMOKING CESSATION THERAPY
     Route: 055
     Dates: start: 20110927, end: 20110927
  4. NICOTINE [Suspect]
     Route: 065
  5. ACETYLSALICYLIC ACID [Concomitant]
     Indication: PRODUCT USED FOR UNKNOWN INDICATION
     Route: 065
  6. STEROIDS NOS [Concomitant]
     Indication: HYPOTENSION
     Route: 065
  7. KLONOPIN [Concomitant]
     Indication: PRODUCT USED FOR UNKNOWN INDICATION
     Route: 065
  8. VALIUM [Concomitant]
     Indication: PRODUCT USED FOR UNKNOWN INDICATION
     Route: 065

REACTIONS (4)
  - FEELING ABNORMAL [None]
  - OEDEMA PERIPHERAL [None]
  - PRURITUS [None]
  - DYSGEUSIA [None]
